FAERS Safety Report 8532209-X (Version None)
Quarter: 2012Q3

REPORT INFORMATION
  Report Type: 
  Country: None (occurrence: None)
  Receive Date: 20120723
  Receipt Date: 20120720
  Transmission Date: 20120928
  Serious: Yes (Hospitalization)
  Sender: FDA-Public Use
  Company Number: BR-ROCHE-1083805

PATIENT
  Sex: Female
  Weight: 83 kg

DRUGS (5)
  1. PREDNISONE [Concomitant]
  2. METHOTREXATE [Concomitant]
  3. FOLIN [Concomitant]
  4. DIOSMIN [Concomitant]
  5. ACTEMRA [Suspect]
     Indication: RHEUMATOID ARTHRITIS
     Dates: start: 20120129

REACTIONS (3)
  - THROMBOSIS [None]
  - URINARY TRACT INFECTION [None]
  - PYREXIA [None]
